FAERS Safety Report 5152118-6 (Version None)
Quarter: 2006Q4

REPORT INFORMATION
  Report Type: 
  Country: None (occurrence: None)
  Receive Date: 20061116
  Receipt Date: 20060726
  Transmission Date: 20070319
  Serious: Yes (Hospitalization, Other)
  Sender: FDA-Public Use
  Company Number: PHEH2006US09570

PATIENT
  Age: 62 Year
  Sex: Female
  Weight: 45.351 kg

DRUGS (5)
  1. EXJADE [Suspect]
     Indication: IRON OVERLOAD
     Dosage: 1250 MG, QD
     Dates: start: 20060601, end: 20060720
  2. FOLIC ACID [Concomitant]
     Indication: HAEMOLYSIS
     Dosage: 1 MG, QD
     Route: 048
  3. LASIX [Concomitant]
     Indication: CARDIAC FAILURE CONGESTIVE
     Dosage: 20 MG, QD
     Route: 048
  4. FOSAMAX [Concomitant]
     Indication: OSTEOPOROSIS
     Dosage: 70 MG, QW
     Route: 048
  5. ASPIRIN [Concomitant]

REACTIONS (17)
  - ANGIONEUROTIC OEDEMA [None]
  - BLOOD BILIRUBIN INCREASED [None]
  - BLOOD UREA INCREASED [None]
  - CARDIAC DISORDER [None]
  - DYSPHAGIA [None]
  - FACE OEDEMA [None]
  - HAEMATOCRIT DECREASED [None]
  - HAEMOGLOBIN DECREASED [None]
  - HYPERSENSITIVITY [None]
  - LARYNGOSCOPY ABNORMAL [None]
  - LIP HAEMORRHAGE [None]
  - LIP ULCERATION [None]
  - LIVER DISORDER [None]
  - PALATAL DISORDER [None]
  - PETECHIAE [None]
  - RENAL FAILURE [None]
  - STEVENS-JOHNSON SYNDROME [None]
